FAERS Safety Report 19469211 (Version 1)
Quarter: 2021Q2

REPORT INFORMATION
  Report Type: Report from Study
  Country: None (occurrence: CA)
  Receive Date: 20210629
  Receipt Date: 20210629
  Transmission Date: 20210717
  Serious: Yes (Other)
  Sender: FDA-Public Use
  Company Number: CA-ABBVIE-21K-028-3966888-00

PATIENT
  Age: 75 Year
  Sex: Female

DRUGS (2)
  1. DUODOPA [Suspect]
     Active Substance: CARBIDOPA\LEVODOPA
  2. DUODOPA [Suspect]
     Active Substance: CARBIDOPA\LEVODOPA
     Indication: PARKINSON^S DISEASE
     Dosage: CONTINOUS DOSE RATE 3.4
     Route: 050
     Dates: start: 20200330

REACTIONS (8)
  - Dyskinesia [Unknown]
  - Dizziness [Unknown]
  - Weight decreased [Unknown]
  - Knee operation [Unknown]
  - Asthenia [Unknown]
  - Mobility decreased [Unknown]
  - Fall [Unknown]
  - Stoma site discharge [Unknown]

NARRATIVE: CASE EVENT DATE: 202103
